FAERS Safety Report 8891685 (Version 2)
Quarter: 2012Q4

REPORT INFORMATION
  Report Type: Spontaneous
  Country: US (occurrence: None)
  Receive Date: 20121031
  Receipt Date: 20121101
  Transmission Date: 20130627
  Serious: Yes (Death, Hospitalization)
  Sender: FDA-Public Use
  Company Number: 2012SGN00471

PATIENT
  Age: 68 Year
  Sex: Male

DRUGS (13)
  1. BRENTUXIMAB VEDOTIN [Suspect]
     Indication: ACUTE GRAFT VERSUS HOST DISEASE
     Dosage: 0.6 mg/kg, qcycle, Intravenous
     Route: 042
     Dates: start: 20120910, end: 20120924
  2. ACYCLOVIR ALPHARMA(ACICLOVIR) [Concomitant]
  3. CALCIUM CITRATE W/VITAMIN D NOS (CALCIUM CITRATE W/VITAMIN D NOS) [Concomitant]
  4. DAPSONE (DAPSONE) [Concomitant]
  5. FAMOTIDINE (FAMOTIDINE) [Concomitant]
  6. FOLATE (FOLIC ACID) [Concomitant]
  7. GLIPIZIDE (GLIPIZIDE) [Concomitant]
  8. MAGNESIUM OXIDE (MAGNESIUM OXIDE) [Concomitant]
  9. MULTIVITAMIN (VITAMINS NOS) [Concomitant]
  10. NOVOLIN N (INSULIN HUMAN INJECTION, ISOPHANE) [Concomitant]
  11. PREDNISONE (PREDNISONE ACETATE) [Concomitant]
  12. SIROLIMUS (SIROLIMUS) [Concomitant]
  13. TACROLIMUS (TACROLIMUS) [Concomitant]

REACTIONS (5)
  - Lymphopenia [None]
  - Abdominal pain [None]
  - Febrile neutropenia [None]
  - Disease recurrence [None]
  - Lymphoma [None]
